FAERS Safety Report 13517493 (Version 1)
Quarter: 2017Q2

REPORT INFORMATION
  Report Type: Spontaneous
  Country: US (occurrence: US)
  Receive Date: 20170505
  Receipt Date: 20170505
  Transmission Date: 20170830
  Serious: Yes (Hospitalization)
  Sender: FDA-Public Use
  Company Number: None

PATIENT
  Age: 85 Year
  Sex: Female
  Weight: 50.3 kg

DRUGS (5)
  1. BESIVANCE [Concomitant]
     Active Substance: BESIFLOXACIN
  2. CLONAZEPAM. [Concomitant]
     Active Substance: CLONAZEPAM
  3. LOTEPRENOL [Concomitant]
  4. ASPIRIN. [Suspect]
     Active Substance: ASPIRIN
     Indication: PROPHYLAXIS
     Dosage: CHRONIC
     Route: 048
  5. BROMFENAC [Concomitant]
     Active Substance: BROMFENAC SODIUM

REACTIONS (3)
  - Haemorrhage intracranial [None]
  - Intracranial mass [None]
  - Accelerated hypertension [None]

NARRATIVE: CASE EVENT DATE: 20161003
